FAERS Safety Report 19958602 (Version 2)
Quarter: 2021Q4

REPORT INFORMATION
  Report Type: Report from Study
  Country: GB (occurrence: GB)
  Receive Date: 20211015
  Receipt Date: 20211025
  Transmission Date: 20220303
  Serious: No
  Sender: FDA-Public Use
  Company Number: GB-SA-SAC20210331001528

PATIENT
  Age: 49 Year
  Sex: Male

DRUGS (1)
  1. DUPILUMAB [Suspect]
     Active Substance: DUPILUMAB
     Indication: Dermatitis atopic
     Dosage: 300 MG, QOW
     Route: 058
     Dates: start: 201906

REACTIONS (3)
  - Dry skin [Unknown]
  - Erythema [Unknown]
  - Lacrimation increased [Unknown]
